FAERS Safety Report 12596487 (Version 2)
Quarter: 2016Q3

REPORT INFORMATION
  Report Type: Report from Study
  Country: ZA (occurrence: ZA)
  Receive Date: 20160726
  Receipt Date: 20160729
  Transmission Date: 20161109
  Serious: Yes (Death, Hospitalization, Other)
  Sender: FDA-Public Use
  Company Number: ZA-AMGEN-ZAFSL2016094871

PATIENT
  Age: 56 Year
  Sex: Female

DRUGS (1)
  1. ARANESP [Suspect]
     Active Substance: DARBEPOETIN ALFA
     Indication: NEPHROGENIC ANAEMIA
     Dosage: 30 MUG, QWK
     Route: 042
     Dates: start: 201512, end: 201601

REACTIONS (2)
  - Hypertension [Fatal]
  - Cerebrovascular accident [Fatal]

NARRATIVE: CASE EVENT DATE: 201601
